FAERS Safety Report 10974794 (Version 2)
Quarter: 2015Q2

REPORT INFORMATION
  Report Type: Spontaneous
  Country: US (occurrence: US)
  Receive Date: 20150401
  Receipt Date: 20150608
  Transmission Date: 20150821
  Serious: No
  Sender: FDA-Public Use
  Company Number: US-ASTRAZENECA-2008BM07837

PATIENT
  Age: 57 Year
  Sex: Female
  Weight: 72.6 kg

DRUGS (28)
  1. ATACAND [Concomitant]
     Active Substance: CANDESARTAN CILEXETIL
     Dosage: UNK
  2. PROAIR HFA [Concomitant]
     Active Substance: ALBUTEROL SULFATE
     Indication: NASOPHARYNGITIS
     Dates: start: 201302
  3. CENTRUM SILVER [Concomitant]
     Active Substance: VITAMINS
     Indication: FATIGUE
     Dosage: DAILY
     Route: 058
  4. FERROUS SULFATE [Concomitant]
     Active Substance: FERROUS SULFATE\FERROUS SULFATE, DRIED
     Indication: BLOOD COUNT ABNORMAL
     Dates: start: 2013
  5. QUINAPRIL HCTZ [Concomitant]
     Indication: HYPERTENSION
  6. ATENOLOL. [Suspect]
     Active Substance: ATENOLOL
     Indication: HYPERTENSION
     Route: 048
     Dates: start: 1985
  7. EXENATIDE [Suspect]
     Active Substance: EXENATIDE
     Route: 058
  8. AMLOPIN [Concomitant]
     Active Substance: AMLODIPINE BESYLATE
     Dosage: UNK
  9. LIPITOR [Concomitant]
     Active Substance: ATORVASTATIN CALCIUM
     Dosage: UNK
  10. GLYBURIDE. [Concomitant]
     Active Substance: GLYBURIDE
     Dosage: UNK
     Dates: end: 200803
  11. PROAIR HFA [Concomitant]
     Active Substance: ALBUTEROL SULFATE
     Indication: INHALATION THERAPY
     Dates: start: 201302
  12. METFORMIN [Concomitant]
     Active Substance: METFORMIN HYDROCHLORIDE
     Indication: BLOOD GLUCOSE ABNORMAL
     Dates: start: 2000
  13. OVER THE COUNTER VITAMIN D3 [Concomitant]
     Indication: VITAMIN D DEFICIENCY
     Dosage: 2000, DAILY
  14. PAROXETINE [Concomitant]
     Active Substance: PAROXETINE\PAROXETINE HYDROCHLORIDE
     Indication: DEPRESSION
  15. SIMVASTATIN. [Concomitant]
     Active Substance: SIMVASTATIN
     Indication: BLOOD CHOLESTEROL INCREASED
  16. BYETTA [Suspect]
     Active Substance: EXENATIDE
     Indication: TYPE 2 DIABETES MELLITUS
     Route: 065
  17. GLYBURIDE. [Concomitant]
     Active Substance: GLYBURIDE
  18. OXYBUTYNIN [Concomitant]
     Active Substance: OXYBUTYNIN
     Indication: DIURETIC THERAPY
  19. BYETTA [Suspect]
     Active Substance: EXENATIDE
     Indication: TYPE 2 DIABETES MELLITUS
     Dosage: 5 IU, BID
     Route: 058
     Dates: start: 200803
  20. LORAZEPAM. [Concomitant]
     Active Substance: LORAZEPAM
     Dosage: UNK
  21. METFORMIN HYDROCHLORIDE. [Concomitant]
     Active Substance: METFORMIN HYDROCHLORIDE
     Dosage: UNK
     Dates: end: 200803
  22. ST. JOSEPHS BABY ASPIRIN [Concomitant]
     Indication: DIABETES MELLITUS
     Dates: start: 2013
  23. CLONAZEPAM. [Concomitant]
     Active Substance: CLONAZEPAM
     Indication: ANXIETY
  24. OMEPRAZOLE. [Suspect]
     Active Substance: OMEPRAZOLE
     Indication: GASTROOESOPHAGEAL REFLUX DISEASE
     Route: 048
     Dates: start: 2005
  25. OVER THE COUNTER VITAMIN D3 [Concomitant]
     Indication: VITAMIN D DEFICIENCY
     Dosage: 1000, DAILY
  26. FERROUS SULFATE [Concomitant]
     Active Substance: FERROUS SULFATE\FERROUS SULFATE, DRIED
     Indication: IRON DEFICIENCY
     Dates: start: 2013
  27. SYMBICORT [Suspect]
     Active Substance: BUDESONIDE\FORMOTEROL FUMARATE DIHYDRATE
     Indication: CHRONIC OBSTRUCTIVE PULMONARY DISEASE
     Dosage: 160/4.5 MCG,TWO PUFFS, TWO TIMES A DAY
     Route: 055
     Dates: start: 201402
  28. FERROUS SULFATE [Concomitant]
     Active Substance: FERROUS SULFATE\FERROUS SULFATE, DRIED
     Indication: ANAEMIA
     Dates: start: 2013

REACTIONS (27)
  - Blood glucose increased [Not Recovered/Not Resolved]
  - Cough [Not Recovered/Not Resolved]
  - Hiatus hernia [Unknown]
  - Dyspepsia [Not Recovered/Not Resolved]
  - Visual acuity reduced [Unknown]
  - Weight increased [Not Recovered/Not Resolved]
  - Iron deficiency [Unknown]
  - Gastrooesophageal reflux disease [Not Recovered/Not Resolved]
  - Pollakiuria [Recovered/Resolved]
  - Macular oedema [Not Recovered/Not Resolved]
  - Anaemia [Unknown]
  - Intentional product misuse [Unknown]
  - Rhinorrhoea [Not Recovered/Not Resolved]
  - Contusion [Not Recovered/Not Resolved]
  - Thirst [Recovered/Resolved]
  - Weight decreased [Unknown]
  - Glycosylated haemoglobin increased [Recovered/Resolved]
  - Nasopharyngitis [Not Recovered/Not Resolved]
  - Ageusia [Recovered/Resolved]
  - Throat irritation [Unknown]
  - Blood glucose decreased [Recovered/Resolved]
  - Body height decreased [Not Recovered/Not Resolved]
  - Somnolence [Unknown]
  - Off label use [Unknown]
  - Chronic obstructive pulmonary disease [Not Recovered/Not Resolved]
  - Eating disorder [Not Recovered/Not Resolved]
  - Dysphonia [Not Recovered/Not Resolved]

NARRATIVE: CASE EVENT DATE: 2000
